FAERS Safety Report 5313829-2 (Version None)
Quarter: 2007Q2

REPORT INFORMATION
  Report Type: 
  Country: None (occurrence: None)
  Receive Date: 20070501
  Receipt Date: 20070426
  Transmission Date: 20071010
  Serious: Yes (Hospitalization)
  Sender: FDA-Public Use
  Company Number: US-GLAXOSMITHKLINE-A0648901A

PATIENT
  Age: 53 Year
  Sex: Female

DRUGS (4)
  1. SEREVENT [Suspect]
     Indication: DRUG USE FOR UNKNOWN INDICATION
     Route: 055
     Dates: start: 20040901, end: 20050512
  2. ALBUTEROL [Concomitant]
  3. ATENOLOL [Concomitant]
  4. CLARITIN [Concomitant]

REACTIONS (5)
  - ASTHMA [None]
  - DYSPNOEA [None]
  - HYPERVENTILATION [None]
  - INSOMNIA [None]
  - WHEEZING [None]
